FAERS Safety Report 8564988-X (Version None)
Quarter: 2012Q3

REPORT INFORMATION
  Report Type: 
  Country: None (occurrence: None)
  Receive Date: 20120803
  Receipt Date: 20120727
  Transmission Date: 20120928
  Serious: Yes (Hospitalization)
  Sender: FDA-Public Use
  Company Number: US-ABBOTT-12P-163-0961899-00

PATIENT
  Age: 32 Year
  Sex: Female

DRUGS (2)
  1. HUMIRA [Suspect]
     Indication: CROHN'S DISEASE
     Dates: start: 20110401, end: 20120601
  2. HUMIRA [Suspect]
     Dates: start: 20120601

REACTIONS (11)
  - CROHN'S DISEASE [None]
  - WEIGHT INCREASED [None]
  - ABDOMINAL PAIN UPPER [None]
  - GASTRIC ULCER [None]
  - VOMITING [None]
  - GASTROINTESTINAL INFLAMMATION [None]
  - INJECTION SITE HAEMATOMA [None]
  - MALAISE [None]
  - WRONG TECHNIQUE IN DRUG USAGE PROCESS [None]
  - OEDEMA PERIPHERAL [None]
  - INJECTION SITE SWELLING [None]
